FAERS Safety Report 4837645-0 (Version None)
Quarter: 2005Q4

REPORT INFORMATION
  Report Type: 
  Country: None (occurrence: None)
  Receive Date: 20051128
  Receipt Date: 20051103
  Transmission Date: 20060501
  Serious: Yes (Other)
  Sender: FDA-Public Use
  Company Number: PHFR2005GB03642

PATIENT
  Age: 68 Year
  Sex: Female

DRUGS (5)
  1. EXELON [Suspect]
     Indication: DEMENTIA ALZHEIMER'S TYPE
     Dosage: 3MG/DAY
     Route: 048
     Dates: start: 20051026
  2. DOXAZOSIN [Concomitant]
     Indication: HYPERTENSION
     Dosage: 4MG DAILY
     Route: 048
  3. NIFEDIPINE [Concomitant]
     Indication: HYPERTENSION
     Route: 048
  4. CAPTOPRIL [Concomitant]
     Indication: HYPERTENSION
     Dosage: 150MG DAILY
     Route: 048
  5. TRIMETHOPRIM [Concomitant]
     Indication: PYELONEPHRITIS CHRONIC
     Dosage: 200MG DAILY
     Route: 048

REACTIONS (4)
  - CIRCULATORY COLLAPSE [None]
  - DIZZINESS [None]
  - MEDICATION ERROR [None]
  - VOMITING [None]
